FAERS Safety Report 4575979-8 (Version None)
Quarter: 2005Q1

REPORT INFORMATION
  Report Type: 
  Country: None (occurrence: None)
  Receive Date: 20050204
  Receipt Date: 20050121
  Transmission Date: 20050727
  Serious: Yes (Life-Threatening, Other)
  Sender: FDA-Public Use
  Company Number: 2005019602

PATIENT
  Age: 73 Year
  Sex: Female
  Weight: 47 kg

DRUGS (7)
  1. SOLU-MEDROL [Suspect]
     Indication: NEPHROTIC SYNDROME
     Dosage: 1000 MG (1000 MG, 1 IN 1 D), INTRAVENOUS
     Route: 042
     Dates: start: 20041216, end: 20041218
  2. PREDNISOLONE SODIUM PHOSPHATE [Suspect]
     Indication: NEPHROTIC SYNDROME
     Dosage: SEE IMAGE
     Route: 042
     Dates: start: 20041209, end: 20041215
  3. PREDNISOLONE SODIUM PHOSPHATE [Suspect]
     Indication: NEPHROTIC SYNDROME
     Dosage: SEE IMAGE
     Route: 042
     Dates: start: 20041219, end: 20050108
  4. PREDNISONE [Suspect]
     Indication: NEPHROTIC SYNDROME
     Dosage: 30 MG (1 IN 1 D), ORAL
     Route: 048
     Dates: start: 20050109
  5. CANDESARTAN CILEXETIL (CANDESARTAN CILEXETIL) [Concomitant]
  6. AMLODIPINE BESYLATE [Concomitant]
  7. FUROSEMIDE [Concomitant]

REACTIONS (7)
  - DELIRIUM [None]
  - DEPRESSION [None]
  - INTENTIONAL SELF-INJURY [None]
  - JOINT INJURY [None]
  - MENTAL DISORDER [None]
  - RESTLESSNESS [None]
  - SUICIDE ATTEMPT [None]
